FAERS Safety Report 8558880-4 (Version None)
Quarter: 2012Q3

REPORT INFORMATION
  Report Type: 
  Country: None (occurrence: None)
  Receive Date: 20120801
  Receipt Date: 20120723
  Transmission Date: 20120928
  Serious: No
  Sender: FDA-Public Use
  Company Number: US-009507513-1207USA009863

PATIENT

DRUGS (17)
  1. MEDROL [Suspect]
     Dosage: 4 MG, UNK
  2. PROVENTIL [Concomitant]
     Dosage: UNK, PRN
  3. METFORMIN HYDROCHLORIDE [Concomitant]
     Dosage: 850 MG, TID
  4. FUROSEMIDE [Concomitant]
     Dosage: 40 MG, PRN
  5. PROPRANOLOL HYDROCHLORIDE [Concomitant]
     Dosage: 40 MG, QID
  6. GLYBURIDE [Concomitant]
     Dosage: 10 MG, TID
     Route: 048
  7. ATORVASTATIN CALCIUM [Suspect]
  8. PENICILLIN G [Suspect]
  9. AMLODIPINE BESYLATE [Suspect]
  10. INSULIN [Concomitant]
     Dosage: 10 IU, TID
  11. ZOCOR [Suspect]
     Route: 048
  12. STARLIX [Concomitant]
     Dosage: 120 MG, BID
  13. COZAAR [Concomitant]
     Dosage: 100 MG, QD
     Route: 048
  14. GLIMEPIRIDE [Concomitant]
     Dosage: 4 MG, TID
  15. CORTISPORIN CREAM [Suspect]
  16. BACTRIM [Suspect]
  17. SYNTHROID [Concomitant]
     Dosage: 50 MICROGRAM, QD
     Route: 048

REACTIONS (5)
  - PRURITUS GENERALISED [None]
  - HYPERSENSITIVITY [None]
  - BLOOD GLUCOSE INCREASED [None]
  - RASH [None]
  - OEDEMA PERIPHERAL [None]
